FAERS Safety Report 8906972 (Version 1)
Quarter: 2012Q4

REPORT INFORMATION
  Report Type: 
  Country: IN (occurrence: IN)
  Receive Date: 20121114
  Receipt Date: 20121114
  Transmission Date: 20130627
  Serious: Yes (Other)
  Sender: FDA-Public Use
  Company Number: IN-SANOFI-AVENTIS-2012SA081888

PATIENT
  Age: 2 Year
  Sex: Male
  Weight: 14 kg

DRUGS (7)
  1. ISONIAZID [Suspect]
     Indication: TUBERCULOSIS
     Route: 065
  2. RIFAMPICIN [Suspect]
     Indication: TUBERCULOSIS
     Route: 065
  3. ETHAMBUTOL [Suspect]
     Indication: TUBERCULOSIS
     Route: 065
  4. OFLOXACIN [Suspect]
     Indication: TUBERCULOSIS
     Route: 065
  5. STREPTOMYCIN [Suspect]
     Indication: TUBERCULOSIS
     Route: 065
  6. CORTICOSTEROID NOS [Concomitant]
  7. PHENYTOIN [Concomitant]

REACTIONS (3)
  - Tuberculoma of central nervous system [Unknown]
  - Paradoxical drug reaction [Unknown]
  - Convulsion [Unknown]
